FAERS Safety Report 5165377-0 (Version None)
Quarter: 2006Q4

REPORT INFORMATION
  Report Type: 
  Country: None (occurrence: None)
  Receive Date: 20061128
  Receipt Date: 20061115
  Transmission Date: 20070319
  Serious: Yes (Hospitalization, Other)
  Sender: FDA-Public Use
  Company Number: 2006132230

PATIENT
  Age: 59 Year
  Sex: Male

DRUGS (6)
  1. LIPITOR [Suspect]
     Indication: HYPERCHOLESTEROLAEMIA
     Dosage: 5 MG (5 MG, 1 IN 1 D), ORAL
     Route: 048
     Dates: start: 20060706, end: 20060818
  2. ASPIRIN [Concomitant]
  3. NIZATIDINE [Concomitant]
  4. TICLOPIDINE HCL [Concomitant]
  5. SENNA LEAF (SENNA LEAF) [Concomitant]
  6. LOXOPROFEN SODIUM (LOXOPROFEN SODIUM) [Concomitant]

REACTIONS (1)
  - LIVER DISORDER [None]
